FAERS Safety Report 11131501 (Version 1)
Quarter: 2015Q2

REPORT INFORMATION
  Report Type: Report from Study
  Country: US (occurrence: US)
  Receive Date: 20150522
  Receipt Date: 20150522
  Transmission Date: 20150821
  Serious: Yes (Other)
  Sender: FDA-Public Use
  Company Number: US-BAYER-2015-236243

PATIENT
  Age: 83 Year
  Sex: Female

DRUGS (1)
  1. STIVARGA [Suspect]
     Active Substance: REGORAFENIB
     Indication: COLON CANCER
     Dosage: 160 MG, QD FOR 3 WEEKS ON AND 1 WEEK OFF
     Route: 048
     Dates: start: 20150505

REACTIONS (8)
  - Fatigue [Not Recovered/Not Resolved]
  - Blood magnesium decreased [Not Recovered/Not Resolved]
  - Dehydration [Not Recovered/Not Resolved]
  - Hepatic enzyme increased [Not Recovered/Not Resolved]
  - Diarrhoea [Not Recovered/Not Resolved]
  - Muscle spasms [Not Recovered/Not Resolved]
  - Chest pain [Not Recovered/Not Resolved]
  - Asthenia [Not Recovered/Not Resolved]

NARRATIVE: CASE EVENT DATE: 20150505
